FAERS Safety Report 4899446-7 (Version None)
Quarter: 2006Q1

REPORT INFORMATION
  Report Type: 
  Country: None (occurrence: None)
  Receive Date: 20060131
  Receipt Date: 20060113
  Transmission Date: 20060701
  Serious: Yes (Hospitalization)
  Sender: FDA-Public Use
  Company Number: DSA_27658_2006

PATIENT
  Age: 79 Year
  Sex: Female

DRUGS (5)
  1. DILTIAZEM HCL [Suspect]
     Indication: HYPERTENSION
     Dosage: 120 MG QD PO
     Route: 048
     Dates: start: 20051001, end: 20051129
  2. DOXAZOSIN [Concomitant]
  3. DIGOXIN [Concomitant]
  4. ENALAPRIL [Concomitant]
  5. ASPIRIN [Concomitant]

REACTIONS (2)
  - BLOOD SODIUM DECREASED [None]
  - HYPERKALAEMIA [None]
